FAERS Safety Report 18798921 (Version 1)
Quarter: 2021Q1

REPORT INFORMATION
  Report Type: Spontaneous
  Country: US (occurrence: US)
  Receive Date: 20210127
  Receipt Date: 20210127
  Transmission Date: 20210419
  Serious: Yes (Hospitalization)
  Sender: FDA-Public Use
  Company Number: None

PATIENT
  Age: 60 Year
  Sex: Female

DRUGS (10)
  1. ORENCIA [Suspect]
     Active Substance: ABATACEPT
     Indication: RHEUMATOID ARTHRITIS
     Route: 058
     Dates: start: 20191215
  2. OMEPRAZOLE. [Concomitant]
     Active Substance: OMEPRAZOLE
  3. METOPROLOL ER [Concomitant]
     Active Substance: METOPROLOL SUCCINATE
  4. PLAQUENIL [Concomitant]
     Active Substance: HYDROXYCHLOROQUINE SULFATE
  5. DOCUSATE SOD [Concomitant]
  6. VIT D3 GUMM [Concomitant]
  7. ELIQUIS [Concomitant]
     Active Substance: APIXABAN
  8. VOLTAREN [Concomitant]
     Active Substance: DICLOFENAC SODIUM
  9. CALCIUM 500+D [Concomitant]
     Active Substance: CALCIUM\VITAMIN D
  10. FLONAS ALGY [Concomitant]

REACTIONS (1)
  - Cardiac ablation [None]

NARRATIVE: CASE EVENT DATE: 20210122
